FAERS Safety Report 7346943-0 (Version None)
Quarter: 2011Q1

REPORT INFORMATION
  Report Type: 
  Country: None (occurrence: None)
  Receive Date: 20110311
  Receipt Date: 20110304
  Transmission Date: 20110831
  Serious: Yes (Other)
  Sender: FDA-Public Use
  Company Number: GB-JNJFOC-20110303632

PATIENT
  Age: 31 Year
  Sex: Male

DRUGS (5)
  1. RISPERDONE [Suspect]
     Route: 048
  2. CLOZARIL [Suspect]
     Route: 048
  3. RISPERDONE [Suspect]
     Indication: SCHIZOPHRENIA
     Route: 048
  4. FLUOXETINE [Concomitant]
     Indication: PRODUCT USED FOR UNKNOWN INDICATION
     Route: 048
  5. CLOZARIL [Suspect]
     Indication: SCHIZOPHRENIA
     Route: 048

REACTIONS (2)
  - PLATELET COUNT DECREASED [None]
  - GENERAL PHYSICAL HEALTH DETERIORATION [None]
